FAERS Safety Report 9436731 (Version 2)
Quarter: 2013Q3

REPORT INFORMATION
  Report Type: Spontaneous
  Country: US (occurrence: US)
  Receive Date: 20130802
  Receipt Date: 20130820
  Transmission Date: 20140515
  Serious: Yes (Hospitalization)
  Sender: FDA-Public Use
  Company Number: US-JNJFOC-20130715888

PATIENT
  Age: 65 Year
  Sex: Female
  Weight: 47.17 kg

DRUGS (1)
  1. SIMPONI [Suspect]
     Indication: PSORIATIC ARTHROPATHY
     Route: 058

REACTIONS (5)
  - Vascular graft [Unknown]
  - Psoriasis [Not Recovered/Not Resolved]
  - Drug dose omission [Recovered/Resolved]
  - Contusion [Not Recovered/Not Resolved]
  - Device malfunction [Unknown]
